FAERS Safety Report 18819822 (Version 1)
Quarter: 2021Q1

REPORT INFORMATION
  Report Type: Spontaneous
  Country: US (occurrence: US)
  Receive Date: 20210202
  Receipt Date: 20210202
  Transmission Date: 20210419
  Serious: No
  Sender: FDA-Public Use
  Company Number: US-AMGEN-USASP2021015977

PATIENT
  Age: 48 Year
  Sex: Female

DRUGS (6)
  1. COSENTYX [Concomitant]
     Active Substance: SECUKINUMAB
     Dosage: UNK
  2. OTEZLA [Suspect]
     Active Substance: APREMILAST
     Indication: PSORIASIS
  3. METHOTREXATE. [Concomitant]
     Active Substance: METHOTREXATE
     Dosage: UNK
  4. FOLIC ACID. [Concomitant]
     Active Substance: FOLIC ACID
     Dosage: UNK
  5. OTEZLA [Suspect]
     Active Substance: APREMILAST
     Indication: PSORIATIC ARTHROPATHY
     Dosage: 30 MILLIGRAM, BID
     Route: 065
     Dates: start: 202008
  6. NABUMETONE. [Concomitant]
     Active Substance: NABUMETONE
     Dosage: UNK

REACTIONS (1)
  - Adverse event [Not Recovered/Not Resolved]
